FAERS Safety Report 23329369 (Version 1)
Quarter: 2023Q4

REPORT INFORMATION
  Report Type: Spontaneous
  Country: GB (occurrence: GB)
  Receive Date: 20231222
  Receipt Date: 20231222
  Transmission Date: 20240109
  Serious: Yes (Other)
  Sender: FDA-Public Use
  Company Number: None

PATIENT

DRUGS (6)
  1. IBUPROFEN [Suspect]
     Active Substance: IBUPROFEN
     Indication: Product used for unknown indication
     Dosage: 100 MG
  2. AMOXICILLIN [Concomitant]
     Active Substance: AMOXICILLIN
     Indication: Product used for unknown indication
     Dosage: 1 DF, TID
     Dates: start: 20231213
  3. CABERGOLINE [Concomitant]
     Active Substance: CABERGOLINE
     Indication: Product used for unknown indication
     Dosage: 250 ?G, BID (SUPPRESS L...)
     Dates: start: 20231025, end: 20231027
  4. NON-MEDICINAL PRODUCTS [Concomitant]
     Indication: Product used for unknown indication
     Dosage: UNK (INHALE ONE OR TWO DOSES UP TO FOUR TIMES A DAY)
     Dates: start: 20231213
  5. NON-MEDICINAL PRODUCTS [Concomitant]
     Dosage: UNK (USE AS DIRECTED)
     Dates: start: 20231213
  6. NITROFURANTOIN [Concomitant]
     Active Substance: NITROFURANTOIN
     Indication: Product used for unknown indication
     Dosage: 1 DF, BID
     Dates: start: 20231120, end: 20231123

REACTIONS (1)
  - Dyspnoea [Recovered/Resolved]
